FAERS Safety Report 25172907 (Version 1)
Quarter: 2025Q2

REPORT INFORMATION
  Report Type: Spontaneous
  Country: US (occurrence: None)
  Receive Date: 20250408
  Receipt Date: 20250408
  Transmission Date: 20250716
  Serious: No
  Sender: FDA-CTU
  Company Number: None

PATIENT

DRUGS (5)
  1. ROSUVASTATIN [Suspect]
     Active Substance: ROSUVASTATIN
  2. ATORVASTATIN [Suspect]
     Active Substance: ATORVASTATIN
  3. PRAVASTATIN [Suspect]
     Active Substance: PRAVASTATIN
  4. SIMVASTATIN [Suspect]
     Active Substance: SIMVASTATIN
  5. LOVASTATIN [Suspect]
     Active Substance: LOVASTATIN

REACTIONS (1)
  - Drug intolerance [None]
